FAERS Safety Report 21341915 (Version 1)
Quarter: 2022Q3

REPORT INFORMATION
  Report Type: Spontaneous
  Country: ES (occurrence: ES)
  Receive Date: 20220916
  Receipt Date: 20220916
  Transmission Date: 20221027
  Serious: Yes (Hospitalization)
  Sender: FDA-Public Use
  Company Number: ES-AEMPS-1251510

PATIENT
  Age: 58 Year
  Sex: Male

DRUGS (8)
  1. TEMOZOLOMIDE [Suspect]
     Active Substance: TEMOZOLOMIDE
     Indication: Glioblastoma
     Dosage: 750 MILLIGRAM, 150MG/24H FROM MONDAY TO FRIDAY CONCOMITANT WITH RADIOTHERAPY
     Route: 048
     Dates: start: 20220817
  2. Dexametasona 1 mg comprimido [Concomitant]
     Indication: Inflammation
     Dosage: 1 MILLIGRAM, QOD
     Route: 048
     Dates: start: 20220630
  3. Omeprazol 20 mg capsula [Concomitant]
     Indication: Gastroduodenal ulcer
     Dosage: 1 DOSAGE FORM, DAILY
     Route: 048
  4. ONDANSETRON  EDIGEN 8 mg COMPRIMIDOS RECUBIERTOS CON PELICULA EFG [Concomitant]
     Indication: Prophylaxis of nausea and vomiting
     Dosage: 1 DOSAGE FORM, DAILY
     Route: 048
     Dates: start: 20220817
  5. AVAMYS  27,5 mcg/PULVERIZACION PARA SUSPENSION NASAL, 1 frasco de 120 [Concomitant]
     Indication: Pharyngitis
     Dosage: 1 DOSAGE FORM, DAILY
     Route: 045
     Dates: start: 20210723
  6. Levetiracetam 1.000 mg 30 comprimidos [Concomitant]
     Indication: Seizure
     Dosage: 1 DOSAGE FORM, QOD
     Route: 048
     Dates: start: 20220725
  7. LORAZEPAM [Concomitant]
     Active Substance: LORAZEPAM
     Indication: Anxiety
     Dosage: 1 DOSAGE FORM, DAILY
     Route: 048
     Dates: start: 20220622
  8. Dexketoprofeno 25 mg comprimido [Concomitant]
     Indication: Inflammation
     Dosage: 1 DOSAGE FORM/ 3 DAYS
     Route: 048
     Dates: start: 20220630

REACTIONS (1)
  - Deep vein thrombosis [Recovering/Resolving]

NARRATIVE: CASE EVENT DATE: 20220821
